FAERS Safety Report 10020559 (Version 2)
Quarter: 2014Q1

REPORT INFORMATION
  Report Type: Spontaneous
  Country: US (occurrence: US)
  Receive Date: 20140319
  Receipt Date: 20140319
  Transmission Date: 20141002
  Serious: No
  Sender: FDA-Public Use
  Company Number: US-BIOGENIDEC-2014BI024117

PATIENT
  Age: 53 Year
  Sex: Male

DRUGS (2)
  1. TECFIDERA [Suspect]
     Indication: MULTIPLE SCLEROSIS
     Dates: start: 201305, end: 201401
  2. AVONEX [Concomitant]
     Indication: MULTIPLE SCLEROSIS
     Route: 030
     Dates: start: 20090227

REACTIONS (4)
  - Muscular weakness [Not Recovered/Not Resolved]
  - Central nervous system lesion [Unknown]
  - Drug ineffective [Unknown]
  - Paraparesis [Not Recovered/Not Resolved]
